FAERS Safety Report 10220813 (Version 2)
Quarter: 2014Q2

REPORT INFORMATION
  Report Type: Spontaneous
  Country: GB (occurrence: GB)
  Receive Date: 20140606
  Receipt Date: 20140606
  Transmission Date: 20141212
  Serious: Yes (Other)
  Sender: FDA-Public Use
  Company Number: GB-009507513-1405GBR008884

PATIENT
  Age: 22 Year
  Sex: Female

DRUGS (1)
  1. NEXPLANON [Suspect]
     Dosage: UNK
     Route: 059
     Dates: start: 20140331

REACTIONS (5)
  - Abortion spontaneous [Recovered/Resolved]
  - Malaise [Unknown]
  - Haemorrhage [Unknown]
  - Asthenia [Unknown]
  - Unintended pregnancy [Unknown]
